FAERS Safety Report 4281942-7 (Version None)
Quarter: 2004Q1

REPORT INFORMATION
  Report Type: 
  Country: None (occurrence: None)
  Receive Date: 20040128
  Receipt Date: 20040122
  Transmission Date: 20041129
  Serious: Yes (Other)
  Sender: FDA-Public Use
  Company Number: 2004-01-1356

PATIENT
  Age: 3 Year
  Sex: Male

DRUGS (3)
  1. GENTAMICIN [Suspect]
     Indication: BACTERIAL INFECTION
  2. PENICILLIN G [Suspect]
     Indication: BACTERIAL INFECTION
  3. ASPIRIN [Concomitant]

REACTIONS (7)
  - FIBRIN DEGRADATION PRODUCTS INCREASED [None]
  - HAEMATOCRIT DECREASED [None]
  - IRRITABILITY [None]
  - LETHARGY [None]
  - PURPURA [None]
  - SERUM SICKNESS [None]
  - TONSILLAR DISORDER [None]
